FAERS Safety Report 5591668-5 (Version None)
Quarter: 2007Q4

REPORT INFORMATION
  Report Type: 
  Country: None (occurrence: None)
  Receive Date: 20071217
  Receipt Date: 20070822
  Transmission Date: 20080405
  Serious: No
  Sender: FDA-Public Use
  Company Number: BDI-010103

PATIENT
  Age: 73 Year
  Sex: Female

DRUGS (1)
  1. MULTIHANCE [Suspect]
     Indication: NUCLEAR MAGNETIC RESONANCE IMAGING
     Dosage: 18 ML ONCE IV
     Route: 042
     Dates: start: 20070822

REACTIONS (8)
  - CHEST PAIN [None]
  - DYSPHONIA [None]
  - HYPERVENTILATION [None]
  - LIP SWELLING [None]
  - PARAESTHESIA [None]
  - PARAESTHESIA ORAL [None]
  - PRURITUS [None]
  - SNEEZING [None]
